FAERS Safety Report 4615475-2 (Version None)
Quarter: 2005Q1

REPORT INFORMATION
  Report Type: 
  Country: None (occurrence: None)
  Receive Date: 20050317
  Receipt Date: 20050307
  Transmission Date: 20050727
  Serious: Yes (Hospitalization)
  Sender: FDA-Public Use
  Company Number: 2005041291

PATIENT
  Age: 33 Year
  Sex: Female

DRUGS (1)
  1. DEPO-PROVERA [Suspect]
     Indication: MENSTRUAL DISCOMFORT
     Dosage: 150 MG (150 MG, INJECTION TRIMESTRAL), INTRAMUSCULAR
     Route: 030
     Dates: start: 20040622, end: 20040622

REACTIONS (2)
  - AMENORRHOEA [None]
  - SINUS OPERATION [None]
